FAERS Safety Report 8506546-9 (Version None)
Quarter: 2012Q3

REPORT INFORMATION
  Report Type: 
  Country: None (occurrence: None)
  Receive Date: 20120712
  Receipt Date: 20120611
  Transmission Date: 20120928
  Serious: No
  Sender: FDA-Public Use
  Company Number: US-GLAXOSMITHKLINE-A0980794A

PATIENT
  Age: 83 Year
  Sex: Male

DRUGS (6)
  1. VITAMIN B-12 [Concomitant]
  2. TESTOSTERONE CYPIONATE [Concomitant]
  3. ASPIRIN [Concomitant]
  4. RECLAST [Concomitant]
  5. CITRACAL [Concomitant]
  6. JALYN [Suspect]
     Indication: PROSTATOMEGALY
     Dosage: 1CAP PER DAY
     Route: 048
     Dates: start: 20120430

REACTIONS (3)
  - CONSTIPATION [None]
  - SOMNOLENCE [None]
  - PRODUCT QUALITY ISSUE [None]
